FAERS Safety Report 9383780 (Version 2)
Quarter: 2013Q3

REPORT INFORMATION
  Report Type: Spontaneous
  Country: US (occurrence: US)
  Receive Date: 20130704
  Receipt Date: 20130717
  Transmission Date: 20140515
  Serious: No
  Sender: FDA-Public Use
  Company Number: US-009507513-1307USA001992

PATIENT
  Sex: Female
  Weight: 54.42 kg

DRUGS (2)
  1. CLARITIN [Suspect]
     Indication: SEASONAL ALLERGY
     Dosage: 10 MG, QD
     Route: 048
     Dates: start: 201306
  2. CLARITIN [Suspect]
     Indication: ALLERGY TO ANIMAL

REACTIONS (1)
  - Drug ineffective [Unknown]
